FAERS Safety Report 12976010 (Version 1)
Quarter: 2016Q4

REPORT INFORMATION
  Report Type: Spontaneous
  Country: US (occurrence: US)
  Receive Date: 20161126
  Receipt Date: 20161126
  Transmission Date: 20170207
  Serious: No
  Sender: FDA-Public Use
  Company Number: US-ASTRAZENECA-2016SF21105

PATIENT
  Sex: Male
  Weight: 108.9 kg

DRUGS (2)
  1. LEVIMIR INSULIN [Concomitant]
     Dosage: 30 UNITS, TWO TIMES A DAY
     Dates: start: 2013
  2. BYETTA [Suspect]
     Active Substance: EXENATIDE
     Indication: TYPE 2 DIABETES MELLITUS
     Route: 058
     Dates: start: 20161003

REACTIONS (1)
  - Blood glucose increased [Unknown]
